FAERS Safety Report 13999750 (Version 1)
Quarter: 2017Q3

REPORT INFORMATION
  Report Type: Other
  Country: CA (occurrence: CA)
  Receive Date: 20170922
  Receipt Date: 20170922
  Transmission Date: 20171128
  Serious: No
  Sender: FDA-Public Use
  Company Number: CA-APOTEX-2017AP016733

PATIENT
  Age: 73 Year
  Sex: Female
  Weight: 67 kg

DRUGS (1)
  1. APO-MELOXICAM [Suspect]
     Active Substance: MELOXICAM
     Indication: ARTHRITIS
     Dosage: 7.5 MG, QD
     Route: 048

REACTIONS (2)
  - Drug ineffective [Recovered/Resolved]
  - Therapeutic response changed [Recovered/Resolved]
